FAERS Safety Report 20102124 (Version 1)
Quarter: 2021Q4

REPORT INFORMATION
  Report Type: Spontaneous
  Country: US (occurrence: None)
  Receive Date: 20211122
  Receipt Date: 20211122
  Transmission Date: 20220303
  Serious: Yes (Death)
  Sender: FDA-Public Use
  Company Number: None

PATIENT
  Age: 65 Year
  Sex: Male

DRUGS (1)
  1. FARXIGA [Suspect]
     Active Substance: DAPAGLIFLOZIN PROPANEDIOL
     Indication: Type 2 diabetes mellitus
     Dosage: OTHER QUANTITY : 1 TABLET(S);?FREQUENCY : DAILY;?
     Route: 048

REACTIONS (10)
  - Back pain [None]
  - Dysuria [None]
  - Urinary retention [None]
  - Dehydration [None]
  - Pain [None]
  - Vomiting [None]
  - Cardiac failure [None]
  - Renal disorder [None]
  - Obstruction [None]
  - Cardio-respiratory arrest [None]

NARRATIVE: CASE EVENT DATE: 20211006
